FAERS Safety Report 7490647-0 (Version None)
Quarter: 2011Q2

REPORT INFORMATION
  Report Type: 
  Country: None (occurrence: None)
  Receive Date: 20110518
  Receipt Date: 20110518
  Transmission Date: 20111010
  Serious: No
  Sender: FDA-Public Use
  Company Number: None

PATIENT
  Sex: Female
  Weight: 79.3795 kg

DRUGS (2)
  1. VENLAFAXINE [Suspect]
     Indication: DEPRESSION
     Dosage: 425 MGM QD PO
     Route: 048
     Dates: start: 20101001
  2. VENLAFAXINE [Suspect]
     Indication: PAIN
     Dosage: 425 MGM QD PO
     Route: 048
     Dates: start: 20101001

REACTIONS (5)
  - DIZZINESS [None]
  - PRODUCT SUBSTITUTION ISSUE [None]
  - NAUSEA [None]
  - DYSGEUSIA [None]
  - ABDOMINAL PAIN [None]
